FAERS Safety Report 19167022 (Version 1)
Quarter: 2021Q2

REPORT INFORMATION
  Report Type: Spontaneous
  Country: NL (occurrence: NL)
  Receive Date: 20210421
  Receipt Date: 20210421
  Transmission Date: 20210717
  Serious: Yes (Hospitalization, Other)
  Sender: FDA-Public Use
  Company Number: NL-ASTRAZENECA-2021A301740

PATIENT
  Sex: Female

DRUGS (2)
  1. FULVESTRANT. [Suspect]
     Active Substance: FULVESTRANT
     Dosage: UNKNOWN
     Route: 065
  2. PALBOCICLIB [Suspect]
     Active Substance: PALBOCICLIB
     Dosage: 125 MG125.0MG UNKNOWN
     Route: 065
     Dates: start: 20180831, end: 20190518

REACTIONS (5)
  - Vomiting [Unknown]
  - Delirium [Unknown]
  - Glomerular filtration rate decreased [Unknown]
  - Gastroenteritis [Unknown]
  - Nausea [Unknown]
